FAERS Safety Report 16316093 (Version 1)
Quarter: 2019Q2

REPORT INFORMATION
  Report Type: Spontaneous
  Country: IT (occurrence: IT)
  Receive Date: 20190515
  Receipt Date: 20190515
  Transmission Date: 20190711
  Serious: Yes (Other)
  Sender: FDA-Public Use
  Company Number: IT-ELI_LILLY_AND_COMPANY-IT201905005686

PATIENT
  Age: 66 Year
  Sex: Male

DRUGS (1)
  1. ERBITUX [Suspect]
     Active Substance: CETUXIMAB
     Indication: TONGUE CANCER METASTATIC
     Dosage: 250 MG/M2, WEEKLY (1/W)
     Route: 042
     Dates: start: 2015

REACTIONS (2)
  - Osteonecrosis [Unknown]
  - Metastases to bone [Unknown]

NARRATIVE: CASE EVENT DATE: 201503
